FAERS Safety Report 9426924 (Version 1)
Quarter: 2013Q3

REPORT INFORMATION
  Report Type: Spontaneous
  Country: IT (occurrence: IT)
  Receive Date: 20130730
  Receipt Date: 20130730
  Transmission Date: 20140515
  Serious: Yes (Other)
  Sender: FDA-Public Use
  Company Number: IT-TEVA-421385ISR

PATIENT
  Age: 41 Year
  Sex: Female

DRUGS (2)
  1. CITALOPRAM [Suspect]
     Indication: ANXIETY
     Dosage: 40 MILLIGRAM DAILY;
     Route: 048
     Dates: start: 20130519, end: 20130520
  2. LEXOTAN 2.5MG/ML [Suspect]
     Indication: ANXIETY
     Dosage: 50 MILLIGRAM DAILY; SOLUTION FOR ORAL DROPS
     Route: 048
     Dates: start: 20130519, end: 20130520

REACTIONS (3)
  - Somnolence [Recovered/Resolved]
  - Sopor [Recovered/Resolved]
  - Drug abuse [Unknown]
